FAERS Safety Report 23160502 (Version 3)
Quarter: 2025Q4

REPORT INFORMATION
  Report Type: Report from Study
  Country: JP (occurrence: JP)
  Receive Date: 20231108
  Receipt Date: 20251230
  Transmission Date: 20260117
  Serious: Yes (Hospitalization, Other)
  Sender: ALEXION PHARMACEUTICALS
  Company Number: JP-ALXN-A202310204AA

PATIENT
  Age: 3 Decade
  Sex: Female
  Weight: 44.6 kg

DRUGS (9)
  1. RAVULIZUMAB [Suspect]
     Active Substance: RAVULIZUMAB
     Indication: Myasthenia gravis
     Dosage: 2400 MILLIGRAM, SINGLE
     Dates: start: 20221222, end: 20221222
  2. RAVULIZUMAB [Suspect]
     Active Substance: RAVULIZUMAB
     Dosage: 3000 MILLIGRAM, Q8W
     Dates: start: 20230105
  3. CEFTRIAXONE [Concomitant]
     Active Substance: CEFTRIAXONE
     Indication: Nasopharyngitis
     Dosage: 2 GRAM, QD
     Dates: start: 20230807, end: 20230810
  4. CEFTRIAXONE [Concomitant]
     Active Substance: CEFTRIAXONE
     Dosage: 2000 MILLIGRAM
     Route: 065
     Dates: start: 20230807, end: 20230809
  5. PYRIDOSTIGMINE BROMIDE [Concomitant]
     Active Substance: PYRIDOSTIGMINE BROMIDE
     Indication: Myasthenia gravis
     Dosage: 60 MG/DAY
     Route: 061
  6. PREDNISOLONE [Concomitant]
     Active Substance: PREDNISOLONE
     Indication: Myasthenia gravis
     Dosage: 10 MG/DAY
     Route: 061
     Dates: start: 20200805, end: 20240307
  7. CYCLOSPORINE [Concomitant]
     Active Substance: CYCLOSPORINE
     Indication: Myasthenia gravis
     Dosage: 220 MG/DAY
     Route: 061
  8. PREDONINE [Concomitant]
     Active Substance: PREDNISOLONE
     Indication: Myasthenia gravis
     Dosage: 9 UNK
     Route: 061
     Dates: start: 20240328, end: 20240522
  9. PREDONINE [Concomitant]
     Active Substance: PREDNISOLONE
     Dosage: 8 MILLIGRAM
     Route: 061

REACTIONS (4)
  - Urinary tract infection [Recovered/Resolved]
  - Nasopharyngitis [Recovered/Resolved]
  - Enteritis infectious [Recovered/Resolved]
  - Drug eruption [Recovered/Resolved]

NARRATIVE: CASE EVENT DATE: 20230807
